FAERS Safety Report 7076279-7 (Version None)
Quarter: 2010Q4

REPORT INFORMATION
  Report Type: 
  Country: None (occurrence: None)
  Receive Date: 20101101
  Receipt Date: 20101018
  Transmission Date: 20110411
  Serious: Yes (Disabling)
  Sender: FDA-Public Use
  Company Number: GB-RANBAXY-2010R1-38986

PATIENT

DRUGS (5)
  1. CIPROFLOXACIN [Suspect]
     Indication: INFECTION
     Dosage: 400 MG, BID
     Route: 042
     Dates: start: 20101003, end: 20101005
  2. BICALUTAMIDE [Concomitant]
     Dosage: 50 MG, QD
     Route: 048
  3. CO-DYDRAMOL [Concomitant]
     Dosage: 1 DF, 1 / 1 AS NECESSARY.
     Route: 048
  4. FLUOXETINE [Concomitant]
     Dosage: 20 MG, QD
     Route: 048
  5. LANSOPRAZOLE [Concomitant]
     Dosage: 30 MG, QD
     Route: 048

REACTIONS (2)
  - CONVULSION [None]
  - RENAL IMPAIRMENT [None]
